FAERS Safety Report 24208883 (Version 1)
Quarter: 2024Q3

REPORT INFORMATION
  Report Type: Spontaneous
  Country: GB (occurrence: GB)
  Receive Date: 20240814
  Receipt Date: 20240814
  Transmission Date: 20241017
  Serious: Yes (Disabling, Other)
  Sender: TEVA
  Company Number: None

PATIENT
  Age: 39 Year
  Sex: Female

DRUGS (1)
  1. RISPERIDONE [Suspect]
     Active Substance: RISPERIDONE
     Indication: Adverse drug reaction
     Route: 065

REACTIONS (1)
  - Periodic limb movement disorder [Recovered/Resolved with Sequelae]

NARRATIVE: CASE EVENT DATE: 20240615
